FAERS Safety Report 21578854 (Version 16)
Quarter: 2023Q4

REPORT INFORMATION
  Report Type: Report from Study
  Country: TH (occurrence: None)
  Receive Date: 20221110
  Receipt Date: 20231129
  Transmission Date: 20240110
  Serious: Yes (Hospitalization)
  Sender: FDA-Public Use
  Company Number: TH-ROCHE-3188987

PATIENT
  Age: 73 Year
  Sex: Female
  Weight: 43.3 kg

DRUGS (81)
  1. MOSUNETUZUMAB [Suspect]
     Active Substance: MOSUNETUZUMAB
     Indication: B-cell lymphoma
     Dosage: ON 20/SEP/2022, SHE RECEIVED MOST RECENT DOSE 5 MG OF STUDY DRUG MOSUNETUZUMAB PRIOR TO AE?DATE OF M
     Route: 058
     Dates: start: 20220920
  2. POLATUZUMAB VEDOTIN [Suspect]
     Active Substance: POLATUZUMAB VEDOTIN
     Indication: B-cell lymphoma
     Dosage: ON 20/SEP/2022, SHE RECEIVED MOST RECENT DOSE OF STUDY DRUG POLATUZUMAB VEDOTIN PRIOR TO AE/SAE, 78.
     Route: 042
     Dates: start: 20220920
  3. VASOPRESSIN [Concomitant]
     Active Substance: VASOPRESSIN
     Indication: Hypotension
  4. SERTRALINE [Concomitant]
     Active Substance: SERTRALINE HYDROCHLORIDE
     Indication: Depression
     Dates: end: 20221102
  5. SIMVASTATIN [Concomitant]
     Active Substance: SIMVASTATIN
     Indication: Dyslipidaemia
     Dates: end: 20221003
  6. OMEPRAZOLE [Concomitant]
     Active Substance: OMEPRAZOLE
     Indication: Gastric ulcer
     Dates: end: 20221209
  7. OMEPRAZOLE [Concomitant]
     Active Substance: OMEPRAZOLE
     Dates: start: 20221228, end: 20230104
  8. LAMIVUDINE [Concomitant]
     Active Substance: LAMIVUDINE
     Dates: end: 20220920
  9. PSEUDOEPHEDRINE [Concomitant]
     Active Substance: PSEUDOEPHEDRINE
     Indication: Nasal congestion
     Dates: start: 20220906, end: 20220927
  10. PREDNISOLONE [Concomitant]
     Active Substance: PREDNISOLONE
     Indication: Secondary adrenocortical insufficiency
     Route: 048
     Dates: start: 20220912, end: 20220918
  11. PREDNISOLONE [Concomitant]
     Active Substance: PREDNISOLONE
     Route: 048
     Dates: start: 20221005, end: 20221209
  12. HISTA-OPH [Concomitant]
     Indication: Dry eye
     Dates: start: 20220912, end: 20221209
  13. CHLORPHENIRAMINE [Concomitant]
     Active Substance: CHLORPHENIRAMINE
     Indication: Premedication
     Dates: start: 20220920, end: 20220920
  14. CHLORPHENIRAMINE [Concomitant]
     Active Substance: CHLORPHENIRAMINE
     Dates: start: 20221003, end: 20221003
  15. CHLORPHENIRAMINE [Concomitant]
     Active Substance: CHLORPHENIRAMINE
     Dates: start: 20221011, end: 20221011
  16. CHLORPHENIRAMINE [Concomitant]
     Active Substance: CHLORPHENIRAMINE
     Dates: start: 20221018, end: 20221018
  17. CHLORPHENIRAMINE [Concomitant]
     Active Substance: CHLORPHENIRAMINE
     Dates: start: 20221104, end: 20221104
  18. CHLORPHENIRAMINE [Concomitant]
     Active Substance: CHLORPHENIRAMINE
     Dates: start: 20221118, end: 20221118
  19. CHLORPHENIRAMINE [Concomitant]
     Active Substance: CHLORPHENIRAMINE
     Dates: start: 20221227, end: 20221227
  20. DEXAMETHASONE [Concomitant]
     Active Substance: DEXAMETHASONE
     Indication: Pneumonia
     Route: 042
     Dates: start: 20220920, end: 20220920
  21. DEXAMETHASONE [Concomitant]
     Active Substance: DEXAMETHASONE
     Route: 048
     Dates: start: 20221003, end: 20221003
  22. DEXAMETHASONE [Concomitant]
     Active Substance: DEXAMETHASONE
     Route: 048
     Dates: start: 20221011, end: 20221011
  23. DEXAMETHASONE [Concomitant]
     Active Substance: DEXAMETHASONE
     Route: 042
     Dates: start: 20221018, end: 20221018
  24. DEXAMETHASONE [Concomitant]
     Active Substance: DEXAMETHASONE
     Dates: start: 20221118, end: 20221118
  25. DEXAMETHASONE [Concomitant]
     Active Substance: DEXAMETHASONE
     Dates: start: 20221228, end: 20221228
  26. DEXAMETHASONE [Concomitant]
     Active Substance: DEXAMETHASONE
     Route: 042
     Dates: start: 20221225, end: 20221227
  27. COTRIMOXAZOLE [Concomitant]
     Active Substance: SULFAMETHOXAZOLE\TRIMETHOPRIM
     Indication: Infection prophylaxis
     Dates: start: 20220920, end: 20221102
  28. ALLOPURINOL [Concomitant]
     Active Substance: ALLOPURINOL
     Indication: Hyperuricaemia
     Dates: start: 20220920, end: 20221102
  29. ALLOPURINOL [Concomitant]
     Active Substance: ALLOPURINOL
     Dates: start: 20221118, end: 20221209
  30. ACYCLOVIR [Concomitant]
     Active Substance: ACYCLOVIR
     Dates: start: 20220920, end: 20221003
  31. ACYCLOVIR [Concomitant]
     Active Substance: ACYCLOVIR
     Dates: start: 20221011, end: 20221102
  32. ACYCLOVIR [Concomitant]
     Active Substance: ACYCLOVIR
     Dates: start: 20221118, end: 20221209
  33. CEFTRIAXONE [Concomitant]
     Active Substance: CEFTRIAXONE\CEFTRIAXONE SODIUM
     Indication: Urinary tract infection
     Route: 042
     Dates: start: 20220924, end: 20220927
  34. CEFTRIAXONE [Concomitant]
     Active Substance: CEFTRIAXONE\CEFTRIAXONE SODIUM
     Indication: Pneumonia
     Route: 042
     Dates: start: 20221210, end: 20221212
  35. LEVOFLOXACIN [Concomitant]
     Active Substance: LEVOFLOXACIN
     Indication: Urinary tract infection
     Route: 048
     Dates: start: 20220928, end: 20220930
  36. OFLOXACIN [Concomitant]
     Active Substance: OFLOXACIN
     Indication: Urinary tract infection
     Route: 048
     Dates: start: 20220924, end: 20220927
  37. DIPROSONE [Concomitant]
     Active Substance: BETAMETHASONE DIPROPIONATE
     Indication: Injection site reaction
     Dates: start: 20221005, end: 20221007
  38. ONSIA [Concomitant]
     Indication: Prophylaxis of nausea and vomiting
     Dates: start: 20221011, end: 20221102
  39. ONSIA [Concomitant]
     Indication: Prophylaxis of nausea and vomiting
  40. TRAMADOL [Concomitant]
     Active Substance: TRAMADOL\TRAMADOL HYDROCHLORIDE
     Indication: Arthralgia
     Dates: start: 20221104, end: 20221209
  41. MYDOCALM [Concomitant]
     Indication: Arthralgia
     Dates: start: 20221102, end: 20221209
  42. LEXAPRO [Concomitant]
     Active Substance: ESCITALOPRAM OXALATE
     Indication: Depression
     Dates: start: 20221103, end: 20221209
  43. LORAZEPAM [Concomitant]
     Active Substance: LORAZEPAM
     Indication: Depression
     Dates: start: 20221103, end: 20221209
  44. HUMAN RED BLOOD CELL [Concomitant]
     Active Substance: HUMAN RED BLOOD CELL
     Indication: Anaemia
     Dates: start: 20221104, end: 20221104
  45. HUMAN RED BLOOD CELL [Concomitant]
     Active Substance: HUMAN RED BLOOD CELL
     Dates: start: 20221223, end: 20221223
  46. CINNARIZINE [Concomitant]
     Active Substance: CINNARIZINE
     Indication: Dizziness
     Dates: start: 20221105, end: 20221209
  47. HALOPERIDOL [Concomitant]
     Active Substance: HALOPERIDOL
     Indication: Depression
     Dates: start: 20221103, end: 20221209
  48. ONDANSETRON [Concomitant]
     Active Substance: ONDANSETRON
     Indication: Nausea
     Dates: start: 20221118, end: 20221209
  49. COTRIMOXAZOLE [Concomitant]
     Active Substance: SULFAMETHOXAZOLE\TRIMETHOPRIM
     Dates: start: 20221118, end: 20221209
  50. SODIUM CHLORIDE [Concomitant]
     Active Substance: SODIUM CHLORIDE
     Indication: Acute kidney injury
     Route: 042
     Dates: start: 20221102, end: 20221105
  51. SODIUM CHLORIDE [Concomitant]
     Active Substance: SODIUM CHLORIDE
     Indication: Hyponatraemia
     Dates: start: 20221003, end: 20221003
  52. SODIUM CHLORIDE [Concomitant]
     Active Substance: SODIUM CHLORIDE
     Dates: start: 20221011, end: 20221011
  53. SODIUM CHLORIDE [Concomitant]
     Active Substance: SODIUM CHLORIDE
     Dates: start: 20221018, end: 20221018
  54. SODIUM CHLORIDE [Concomitant]
     Active Substance: SODIUM CHLORIDE
     Dates: start: 20221118, end: 20221118
  55. SODIUM CHLORIDE [Concomitant]
     Active Substance: SODIUM CHLORIDE
     Dates: start: 20221210, end: 20221210
  56. SODIUM CHLORIDE [Concomitant]
     Active Substance: SODIUM CHLORIDE
     Dates: start: 20221223, end: 20221228
  57. DEXTROMETHORPHAN [Concomitant]
     Active Substance: DEXTROMETHORPHAN
     Indication: COVID-19
     Route: 048
     Dates: start: 20221203, end: 20221209
  58. CETIRIZINE [Concomitant]
     Active Substance: CETIRIZINE HYDROCHLORIDE
     Indication: COVID-19
     Route: 048
     Dates: start: 20221203, end: 20221209
  59. BERODUAL FORTE [Concomitant]
     Indication: Pneumonia
     Route: 055
     Dates: start: 20221210, end: 20221212
  60. BERODUAL FORTE [Concomitant]
     Route: 055
     Dates: start: 20221223, end: 20221223
  61. BERODUAL FORTE [Concomitant]
     Route: 055
     Dates: start: 20221226, end: 20221228
  62. BERODUAL FORTE [Concomitant]
     Route: 055
     Dates: start: 20221231, end: 20230104
  63. REMDESIVIR [Concomitant]
     Active Substance: REMDESIVIR
     Indication: COVID-19
     Route: 042
     Dates: start: 20221210, end: 20221210
  64. REMDESIVIR [Concomitant]
     Active Substance: REMDESIVIR
     Route: 042
     Dates: start: 20221211, end: 20221212
  65. GLYCERYL GUAIACOLATE [Concomitant]
     Indication: Pneumonia
     Route: 048
     Dates: start: 20221210
  66. BROWN MIXTURE (THAILAND) [Concomitant]
     Indication: Pneumonia
     Dosage: 1 OTHER
     Route: 048
     Dates: start: 20221210
  67. AMOXICILLIN\CLAVULANIC ACID [Concomitant]
     Active Substance: AMOXICILLIN\CLAVULANIC ACID
     Indication: Pneumonia
     Route: 048
     Dates: start: 20221212, end: 20221218
  68. AMOXICILLIN\CLAVULANIC ACID [Concomitant]
     Active Substance: AMOXICILLIN\CLAVULANIC ACID
     Route: 048
     Dates: start: 20221223, end: 20221224
  69. CEFTAZIDIME [Concomitant]
     Active Substance: CEFTAZIDIME
     Indication: Pneumonia
     Route: 042
     Dates: start: 20221224, end: 20221227
  70. NOREPINEPHRINE [Concomitant]
     Active Substance: NOREPINEPHRINE
     Indication: Septic shock
     Route: 042
     Dates: start: 20221230, end: 20230104
  71. FENTANYL [Concomitant]
     Active Substance: FENTANYL\FENTANYL CITRATE
     Dates: start: 20221229, end: 20230103
  72. POTASSIUM CHLORIDE [Concomitant]
     Active Substance: POTASSIUM CHLORIDE
     Indication: Hypokalaemia
     Dates: start: 20221230, end: 20221230
  73. POTASSIUM CHLORIDE [Concomitant]
     Active Substance: POTASSIUM CHLORIDE
     Dates: start: 20221228, end: 20221228
  74. DIAZEPAM [Concomitant]
     Active Substance: DIAZEPAM
     Dates: start: 20221227, end: 20221228
  75. TRANEXAMIC ACID [Concomitant]
     Active Substance: TRANEXAMIC ACID
     Dates: start: 20221228, end: 20221228
  76. MIDAZOLAM [Concomitant]
     Active Substance: MIDAZOLAM
     Indication: Agitation
     Dates: start: 20221228, end: 20230104
  77. FUROSEMIDE [Concomitant]
     Active Substance: FUROSEMIDE
     Indication: Oedema
     Dates: start: 20221228, end: 20221229
  78. INSULIN NOS [Concomitant]
     Active Substance: INSULIN NOS
     Indication: Hyperglycaemia
     Dates: start: 20221228, end: 20230101
  79. NPH INSULIN [Concomitant]
     Active Substance: INSULIN BEEF
     Indication: Hyperglycaemia
     Dates: start: 20221230, end: 20221230
  80. UNISON ENEMA [Concomitant]
     Indication: Constipation
     Dates: start: 20230103, end: 20230103
  81. MORPHINE [Concomitant]
     Active Substance: MORPHINE
     Dates: start: 20230103, end: 20230104

REACTIONS (5)
  - Fatigue [Recovered/Resolved]
  - Cytokine release syndrome [Recovered/Resolved]
  - Alanine aminotransferase increased [Not Recovered/Not Resolved]
  - Escherichia sepsis [Recovered/Resolved]
  - Aspartate aminotransferase increased [Recovered/Resolved]

NARRATIVE: CASE EVENT DATE: 20220927
